FAERS Safety Report 25340466 (Version 1)
Quarter: 2025Q2

REPORT INFORMATION
  Report Type: Spontaneous
  Country: US (occurrence: US)
  Receive Date: 20250521
  Receipt Date: 20250521
  Transmission Date: 20250717
  Serious: Yes (Other)
  Sender: ROCHE
  Company Number: US-ROCHE-10000287556

PATIENT
  Sex: Male

DRUGS (7)
  1. AVASTIN [Suspect]
     Active Substance: BEVACIZUMAB
     Indication: Colon cancer
     Dosage: INFUSE
     Route: 065
  2. DEXAMETHASONE [Concomitant]
     Active Substance: DEXAMETHASONE
  3. DIPHENHYDRAMINE [Concomitant]
     Active Substance: DIPHENHYDRAMINE
  4. FAMOTIDINE [Concomitant]
     Active Substance: FAMOTIDINE
  5. ONDANSETRON [Concomitant]
     Active Substance: ONDANSETRON
  6. FLUOROURACIL [Concomitant]
     Active Substance: FLUOROURACIL
  7. HEPARIN [Concomitant]
     Active Substance: HEPARIN SODIUM

REACTIONS (1)
  - Metastatic neoplasm [Unknown]
